FAERS Safety Report 12831343 (Version 1)
Quarter: 2016Q4

REPORT INFORMATION
  Report Type: Report from Study
  Country: KR (occurrence: KR)
  Receive Date: 20161008
  Receipt Date: 20161008
  Transmission Date: 20170207
  Serious: Yes (Hospitalization)
  Sender: FDA-Public Use
  Company Number: KR-B.I. PHARMACEUTICALS,INC./RIDGEFIELD-2016-BI-59431RK

PATIENT
  Age: 78 Year
  Sex: Male
  Weight: 76 kg

DRUGS (9)
  1. TRAJENTA [Suspect]
     Active Substance: LINAGLIPTIN
     Indication: TYPE 2 DIABETES MELLITUS
     Route: 048
     Dates: start: 20160627
  2. DIABEX [Concomitant]
     Active Substance: METFORMIN HYDROCHLORIDE
     Indication: DIABETES MELLITUS
     Dosage: EXTENDED RELEASE (XR)
     Route: 048
     Dates: start: 20160627
  3. CELCOK [Concomitant]
     Indication: LUMBAR SPINAL STENOSIS
     Route: 048
  4. CLANZA [Concomitant]
     Indication: LUMBAR SPINAL STENOSIS
     Dosage: CONTROL RELEASE
     Route: 048
  5. SYMBICORT [Concomitant]
     Active Substance: BUDESONIDE\FORMOTEROL FUMARATE DIHYDRATE
     Indication: CHRONIC OBSTRUCTIVE PULMONARY DISEASE
     Dosage: HANDIHALER; INHALER; 4 PUFF, TURBUHALE 160
     Route: 055
  6. LANTUS SOLOSTAR [Concomitant]
     Active Substance: INSULIN GLARGINE
     Indication: DIABETES MELLITUS
     Route: 058
     Dates: start: 20160602
  7. KANARB [Concomitant]
     Indication: HYPERTENSION
     Route: 048
     Dates: start: 20160603
  8. ATORVA [Concomitant]
     Indication: DYSLIPIDAEMIA
     Route: 048
     Dates: end: 20160807
  9. SPIRIVA [Concomitant]
     Active Substance: TIOTROPIUM BROMIDE MONOHYDRATE
     Indication: CHRONIC OBSTRUCTIVE PULMONARY DISEASE
     Dosage: HANDIHALER; INHALER;
     Route: 055

REACTIONS (1)
  - Vestibular neuronitis [Recovered/Resolved]

NARRATIVE: CASE EVENT DATE: 20160723
